FAERS Safety Report 8870509 (Version 1)
Quarter: 2012Q4

REPORT INFORMATION
  Report Type: Spontaneous
  Country: US (occurrence: None)
  Receive Date: 20121026
  Receipt Date: 20121026
  Transmission Date: 20130627
  Serious: Yes (Other)
  Sender: FDA-Public Use
  Company Number: None

PATIENT
  Age: 47 Year
  Sex: Female
  Weight: 122.47 kg

DRUGS (1)
  1. PRADAXA [Suspect]
     Indication: DEEP VEIN THROMBOSIS
     Route: 048
     Dates: start: 20120130, end: 20121022

REACTIONS (9)
  - Diarrhoea [None]
  - Nausea [None]
  - Alopecia [None]
  - Arthralgia [None]
  - Fatigue [None]
  - Disturbance in attention [None]
  - Flatulence [None]
  - Menorrhagia [None]
  - Menorrhagia [None]
